FAERS Safety Report 7851896-2 (Version None)
Quarter: 2011Q4

REPORT INFORMATION
  Report Type: 
  Country: None (occurrence: None)
  Receive Date: 20111026
  Receipt Date: 20111021
  Transmission Date: 20120403
  Serious: Yes (Hospitalization, Other)
  Sender: FDA-Public Use
  Company Number: GB-PFIZER INC-2007064671

PATIENT
  Age: 77 Year
  Sex: Female

DRUGS (6)
  1. SUNITINIB MALATE [Suspect]
     Indication: GASTROINTESTINAL STROMAL TUMOUR
     Dosage: 37.5 MG, 1X/DAY
     Route: 048
     Dates: start: 20060722
  2. CYCLIZINE [Concomitant]
     Route: 048
     Dates: start: 20070803, end: 20070814
  3. LANSOPRAZOLE [Concomitant]
     Route: 048
     Dates: start: 20040924
  4. AMLODIPINE [Concomitant]
     Route: 048
     Dates: start: 20060626
  5. FUROSEMIDE [Concomitant]
     Route: 048
     Dates: start: 20061015
  6. ATORVASTATIN [Concomitant]
     Route: 048
     Dates: start: 20060614

REACTIONS (1)
  - VERTIGO [None]
